FAERS Safety Report 7589160-1 (Version None)
Quarter: 2011Q3

REPORT INFORMATION
  Report Type: 
  Country: None (occurrence: None)
  Receive Date: 20110705
  Receipt Date: 20110606
  Transmission Date: 20111222
  Serious: No
  Sender: FDA-Public Use
  Company Number: US-BAYER-2011-049332

PATIENT
  Age: 18 Year
  Sex: Female

DRUGS (2)
  1. RID MOUSSE [Suspect]
     Dosage: 1 DF, ONCE
     Route: 061
     Dates: start: 20110606, end: 20110606
  2. PRENATAL VITAMINS [Concomitant]

REACTIONS (1)
  - PRURITUS [None]
